FAERS Safety Report 9706869 (Version 4)
Quarter: 2017Q2

REPORT INFORMATION
  Report Type: Report from Study
  Country: DE (occurrence: DE)
  Receive Date: 20131125
  Receipt Date: 20170511
  Transmission Date: 20170830
  Serious: Yes (Death, Other)
  Sender: FDA-Public Use
  Company Number: DE-ROCHE-1304415

PATIENT
  Age: 73 Year
  Sex: Male
  Weight: 57 kg

DRUGS (13)
  1. ONCOFOLIC [Concomitant]
     Active Substance: FOLATE SODIUM
     Indication: RECTAL CANCER
     Route: 042
     Dates: start: 20130603, end: 20130708
  2. OXALIPLATIN. [Concomitant]
     Active Substance: OXALIPLATIN
     Indication: RECTAL CANCER
     Route: 042
     Dates: start: 20130603, end: 20130708
  3. OXALIPLATIN. [Concomitant]
     Active Substance: OXALIPLATIN
     Route: 042
     Dates: start: 20130715, end: 20130909
  4. 5-FLUOROURACIL [Concomitant]
     Active Substance: FLUOROURACIL
     Route: 042
     Dates: start: 20130715, end: 20130909
  5. ONCOFOLIC [Concomitant]
     Active Substance: FOLATE SODIUM
     Route: 042
     Dates: start: 20130715, end: 20130909
  6. BEVACIZUMAB [Suspect]
     Active Substance: BEVACIZUMAB
     Indication: COLORECTAL CANCER METASTATIC
     Route: 042
     Dates: start: 20130610
  7. 5-FLUOROURACIL [Concomitant]
     Active Substance: FLUOROURACIL
     Indication: RECTAL CANCER
     Route: 042
     Dates: start: 20130603, end: 20130708
  8. RANITIDIN [Concomitant]
     Active Substance: RANITIDINE HYDROCHLORIDE
     Indication: PROPHYLAXIS
     Route: 048
     Dates: start: 20130603, end: 20130930
  9. 5-FLUOROURACIL [Concomitant]
     Active Substance: FLUOROURACIL
     Route: 042
     Dates: start: 20130916, end: 20130930
  10. BEVACIZUMAB [Suspect]
     Active Substance: BEVACIZUMAB
     Route: 042
     Dates: end: 20130930
  11. OXALIPLATIN. [Concomitant]
     Active Substance: OXALIPLATIN
     Route: 042
     Dates: start: 20130916, end: 20130930
  12. MCP [Concomitant]
     Active Substance: METOCLOPRAMIDE HYDROCHLORIDE
     Indication: PROPHYLAXIS
     Route: 048
     Dates: start: 20130603, end: 20130930
  13. ONCOFOLIC [Concomitant]
     Active Substance: FOLATE SODIUM
     Route: 042
     Dates: start: 20130916, end: 20130930

REACTIONS (5)
  - General physical health deterioration [Fatal]
  - Dizziness [Fatal]
  - Fatigue [Fatal]
  - Cardiovascular disorder [Fatal]
  - Listless [Fatal]

NARRATIVE: CASE EVENT DATE: 20131011
